FAERS Safety Report 11052978 (Version 1)
Quarter: 2015Q2

REPORT INFORMATION
  Report Type: Spontaneous
  Country: US (occurrence: None)
  Receive Date: 20150420
  Receipt Date: 20150420
  Transmission Date: 20150821
  Serious: No
  Sender: FDA-Public Use
  Company Number: None

PATIENT
  Age: 59 Year
  Sex: Female
  Weight: 89.55 kg

DRUGS (2)
  1. CARBOPLATIN. [Suspect]
     Active Substance: CARBOPLATIN
     Dates: end: 20150313
  2. TAXOL [Suspect]
     Active Substance: PACLITAXEL
     Dates: end: 20150313

REACTIONS (3)
  - Ovarian granulosa cell tumour [None]
  - Disease recurrence [None]
  - Neutrophil count decreased [None]

NARRATIVE: CASE EVENT DATE: 20150325
